FAERS Safety Report 9349834 (Version 1)
Quarter: 2013Q2

REPORT INFORMATION
  Report Type: Spontaneous
  Country: US (occurrence: None)
  Receive Date: 20130611
  Receipt Date: 20130611
  Transmission Date: 20140414
  Serious: Yes (Other)
  Sender: FDA-Public Use
  Company Number: US-1198631

PATIENT
  Age: 92 Year
  Sex: Female

DRUGS (13)
  1. SYSTANE [Suspect]
     Route: 047
     Dates: end: 201303
  2. ZEBETA [Concomitant]
  3. CRESTOR [Concomitant]
  4. ECOTRIN [Concomitant]
  5. NORVASC [Concomitant]
  6. PLAVIX [Concomitant]
  7. VITAMIN B [Concomitant]
  8. ASCORVIC ACIID (VITAMIN C) [Concomitant]
  9. VITAMIN D [Concomitant]
  10. FISH [Concomitant]
  11. RESTASIS [Concomitant]
  12. REFRESH TEARS [Concomitant]
  13. LASTACAFT [Concomitant]

REACTIONS (6)
  - Joint injury [None]
  - Visual acuity reduced [None]
  - Lacrimation increased [None]
  - Vision blurred [None]
  - Eye irritation [None]
  - Fall [None]
